FAERS Safety Report 4359651-5 (Version None)
Quarter: 2004Q2

REPORT INFORMATION
  Report Type: 
  Country: None (occurrence: None)
  Receive Date: 20040518
  Receipt Date: 20040507
  Transmission Date: 20050107
  Serious: Yes (Death, Hospitalization)
  Sender: FDA-Public Use
  Company Number: JP-JNJFOC-20031100030

PATIENT
  Sex: Male

DRUGS (13)
  1. LEUSTATIN [Suspect]
     Route: 041
  2. BUSULFAN [Suspect]
     Route: 049
  3. CYCLOSPORINE [Suspect]
     Route: 049
  4. CIPROFLOXACIN HYDROCHLORIDE [Concomitant]
     Route: 049
  5. FLUCONAZOLE [Concomitant]
     Route: 049
  6. ACYCLOVIR [Concomitant]
     Route: 049
  7. SULFAMETHOXAZOLE + TRIMETHOPRIM [Concomitant]
     Route: 049
  8. SULFAMETHOXAZOLE + TRIMETHOPRIM [Concomitant]
     Route: 049
  9. VALPROATE SODIUM [Concomitant]
     Route: 049
  10. METOCLOPRAMIDE [Concomitant]
     Route: 049
  11. SUCRALFATE [Concomitant]
     Route: 049
  12. ACETAMINOPHEN [Concomitant]
     Route: 049
  13. CEFEPIME DIHYDROCHLORIDE [Concomitant]
     Route: 065

REACTIONS (17)
  - ABDOMINAL PAIN UPPER [None]
  - ANGINA UNSTABLE [None]
  - ARTHRALGIA [None]
  - BONE MARROW DEPRESSION [None]
  - CACHEXIA [None]
  - COLD SWEAT [None]
  - CRYPTOGENIC ORGANIZING PNEUMONIA [None]
  - CYTOMEGALOVIRUS ENTERITIS [None]
  - ELECTROCARDIOGRAM ST SEGMENT ELEVATION [None]
  - GASTRIC ULCER [None]
  - GENERAL PHYSICAL HEALTH DETERIORATION [None]
  - GRAFT VERSUS HOST DISEASE [None]
  - INTERSTITIAL LUNG DISEASE [None]
  - NAUSEA [None]
  - NEPHROPATHY [None]
  - NEUTROPENIA [None]
  - PAIN IN EXTREMITY [None]
